FAERS Safety Report 6183833-3 (Version None)
Quarter: 2009Q2

REPORT INFORMATION
  Report Type: 
  Country: None (occurrence: None)
  Receive Date: 20090506
  Receipt Date: 20090506
  Transmission Date: 20091009
  Serious: Yes (Other)
  Sender: FDA-Public Use
  Company Number: None

PATIENT
  Sex: Female
  Weight: 81.6475 kg

DRUGS (2)
  1. DICLOFENAC SODIUM [Suspect]
     Indication: OSTEOARTHRITIS
     Dosage: 1 TABLET EVERY DAY BY MOUTH
     Route: 048
     Dates: start: 20081101, end: 20090401
  2. CELEBREX [Suspect]
     Indication: OSTEOARTHRITIS
     Dosage: DAILY BY MOUTH
     Route: 048
     Dates: start: 20050701, end: 20071201

REACTIONS (13)
  - CEREBROVASCULAR ACCIDENT [None]
  - CHEST DISCOMFORT [None]
  - CONFUSIONAL STATE [None]
  - CONTUSION [None]
  - DIZZINESS [None]
  - DYSPEPSIA [None]
  - FLATULENCE [None]
  - HYPOAESTHESIA [None]
  - MYOCARDIAL INFARCTION [None]
  - PAIN IN EXTREMITY [None]
  - SKIN DISORDER [None]
  - SOMNOLENCE [None]
  - VISUAL IMPAIRMENT [None]
